FAERS Safety Report 14111626 (Version 1)
Quarter: 2017Q4

REPORT INFORMATION
  Report Type: Spontaneous
  Country: BG (occurrence: BG)
  Receive Date: 20171020
  Receipt Date: 20171020
  Transmission Date: 20180321
  Serious: Yes (Death, Hospitalization)
  Sender: FDA-Public Use
  Company Number: BG-BAYER-2017-197991

PATIENT
  Sex: Female

DRUGS (1)
  1. YAZ [Suspect]
     Active Substance: DROSPIRENONE\ETHINYL ESTRADIOL
     Dosage: UNK
     Route: 048

REACTIONS (8)
  - Subarachnoid haemorrhage [Fatal]
  - Venous thrombosis [Fatal]
  - Infarction [Fatal]
  - Arterial thrombosis [Fatal]
  - General physical health deterioration [Fatal]
  - Coma [Fatal]
  - Brain oedema [Fatal]
  - Cerebral haemorrhage [Fatal]

NARRATIVE: CASE EVENT DATE: 20170809
